FAERS Safety Report 9336612 (Version 1)
Quarter: 2013Q2

REPORT INFORMATION
  Report Type: Spontaneous
  Country: US (occurrence: US)
  Receive Date: 20130607
  Receipt Date: 20130607
  Transmission Date: 20140414
  Serious: Yes (Hospitalization)
  Sender: FDA-Public Use
  Company Number: US-SHIRE-ALL1-2013-02841

PATIENT
  Age: 10 Year
  Sex: Female
  Weight: 46.71 kg

DRUGS (2)
  1. INTUNIV [Suspect]
     Indication: ATTENTION DEFICIT/HYPERACTIVITY DISORDER
     Dosage: 3 MG, 1X/DAY:QD
     Route: 048
     Dates: start: 20121029
  2. FOCALIN [Concomitant]
     Indication: ATTENTION DEFICIT/HYPERACTIVITY DISORDER
     Dosage: 10 MG, 3X/DAY:TID
     Route: 048
     Dates: start: 20121127

REACTIONS (3)
  - Aggression [Not Recovered/Not Resolved]
  - Convulsion [Not Recovered/Not Resolved]
  - Condition aggravated [Recovered/Resolved]
